FAERS Safety Report 5979655-6 (Version None)
Quarter: 2008Q4

REPORT INFORMATION
  Report Type: 
  Country: None (occurrence: None)
  Receive Date: 20081204
  Receipt Date: 20081125
  Transmission Date: 20090506
  Serious: Yes (Other)
  Sender: FDA-Public Use
  Company Number: US-JNJCH-2008055853

PATIENT
  Age: 47 Year
  Sex: Male
  Weight: 95.3 kg

DRUGS (1)
  1. LUDENS SUGAR FREE WILD CHERRY THROAT DROPS [Suspect]
     Indication: SINUS CONGESTION
     Dosage: TEXT:^1 TO MANY EVERYDAY^
     Route: 048

REACTIONS (2)
  - ENTEROCOLITIS HAEMORRHAGIC [None]
  - OFF LABEL USE [None]
